FAERS Safety Report 6018430-3 (Version None)
Quarter: 2008Q4

REPORT INFORMATION
  Report Type: 
  Country: None (occurrence: None)
  Receive Date: 20081223
  Receipt Date: 20081211
  Transmission Date: 20090506
  Serious: Yes (Other)
  Sender: FDA-Public Use
  Company Number: US-PFIZER INC-2008073747

PATIENT
  Sex: Male
  Weight: 68 kg

DRUGS (6)
  1. LYRICA [Suspect]
     Indication: POST HERPETIC NEURALGIA
     Route: 048
     Dates: end: 20080830
  2. WARFARIN SODIUM [Concomitant]
  3. LANOXIN [Concomitant]
  4. VASOTEC [Concomitant]
  5. LOPRESSOR [Concomitant]
  6. ALL OTHER THERAPEUTIC PRODUCTS [Concomitant]
     Indication: CARDIAC DISORDER

REACTIONS (13)
  - BALANCE DISORDER [None]
  - CONTUSION [None]
  - DIPLOPIA [None]
  - DISSOCIATION [None]
  - DIZZINESS [None]
  - FALL [None]
  - FEELING ABNORMAL [None]
  - GAIT DISTURBANCE [None]
  - INJURY [None]
  - IRITIS [None]
  - MENTAL IMPAIRMENT [None]
  - NERVOUSNESS [None]
  - VISION BLURRED [None]
